FAERS Safety Report 17817058 (Version 7)
Quarter: 2020Q3

REPORT INFORMATION
  Report Type: Report from Study
  Country: CA (occurrence: CA)
  Receive Date: 20200522
  Receipt Date: 20200714
  Transmission Date: 20201102
  Serious: Yes (Life-Threatening, Other)
  Sender: FDA-Public Use
  Company Number: CA-ROCHE-2594123

PATIENT
  Age: 60 Year
  Sex: Male
  Weight: 69 kg

DRUGS (33)
  1. TOCILIZUMAB. [Suspect]
     Active Substance: TOCILIZUMAB
     Indication: COVID-19 PNEUMONIA
     Dosage: ON 21/APRL/2020, HE RECEIVED MOST RECENT DOSE OF TOCILIZUMAB AT 18: 25 PRIOR TO SAE ONSET .
     Route: 042
     Dates: start: 20200421
  2. CIPROFLOXACIN. [Concomitant]
     Active Substance: CIPROFLOXACIN
     Indication: INFECTION
     Dates: start: 20200430, end: 20200507
  3. BISACODYL. [Concomitant]
     Active Substance: BISACODYL
     Indication: CONSTIPATION
     Dates: start: 20200423, end: 20200428
  4. MIDODRINE [Concomitant]
     Active Substance: MIDODRINE
     Indication: HYPOTENSION
     Dates: start: 20200503, end: 20200521
  5. ONDANSETRON [Concomitant]
     Active Substance: ONDANSETRON
     Indication: NAUSEA
     Dates: start: 20200423, end: 20200524
  6. ADVAIR HFA [Concomitant]
     Active Substance: FLUTICASONE PROPIONATE\SALMETEROL XINAFOATE
     Dates: start: 20200423
  7. TAZOCIN [Concomitant]
     Active Substance: PIPERACILLIN SODIUM\TAZOBACTAM SODIUM
     Indication: INFECTION
     Dates: start: 20200514, end: 20200515
  8. PROPOFOL. [Concomitant]
     Active Substance: PROPOFOL
     Indication: SEDATION
     Dates: start: 20200515
  9. ACETAMINOPHEN. [Concomitant]
     Active Substance: ACETAMINOPHEN
     Indication: ANALGESIC THERAPY
     Dates: start: 20200421
  10. METOLAZONE. [Concomitant]
     Active Substance: METOLAZONE
     Dates: start: 20200516, end: 20200525
  11. NOREPINEPHRINE. [Concomitant]
     Active Substance: NOREPINEPHRINE
     Indication: HYPOTENSION
     Dates: start: 20200526
  12. SOLU?MEDROL [Concomitant]
     Active Substance: METHYLPREDNISOLONE SODIUM SUCCINATE
     Dates: start: 20200425, end: 20200516
  13. CIPROFLOXACIN. [Concomitant]
     Active Substance: CIPROFLOXACIN
     Dates: start: 20200515, end: 20200517
  14. MORPHINE [Concomitant]
     Active Substance: MORPHINE
     Indication: ANALGESIC THERAPY
     Dates: end: 20200525
  15. MORPHINE [Concomitant]
     Active Substance: MORPHINE
     Dates: start: 20200509, end: 20200519
  16. HUMULIN R [Concomitant]
     Active Substance: INSULIN HUMAN
     Indication: HYPERGLYCAEMIA
     Dosage: 10.5 IU
  17. FUROSEMIDE. [Concomitant]
     Active Substance: FUROSEMIDE
     Indication: FLUID OVERLOAD
     Dates: start: 20200420
  18. QUETIAPINE. [Concomitant]
     Active Substance: QUETIAPINE
     Indication: AGITATION
     Dates: start: 20200506, end: 20200525
  19. CEFTRIAXONE. [Concomitant]
     Active Substance: CEFTRIAXONE
     Indication: INFECTION
     Dates: start: 20200430, end: 20200430
  20. THIAMINE. [Concomitant]
     Active Substance: THIAMINE
     Dates: start: 20200421, end: 20200423
  21. METOCLOPRAMIDE. [Concomitant]
     Active Substance: METOCLOPRAMIDE
     Indication: NAUSEA
     Dates: start: 20200424, end: 20200425
  22. ACETAZOLAMIDE. [Concomitant]
     Active Substance: ACETAZOLAMIDE
     Indication: FLUID OVERLOAD
     Dates: start: 20200511, end: 20200511
  23. SENNA [Concomitant]
     Active Substance: SENNA LEAF\SENNOSIDES\SENNOSIDES A AND B
     Indication: CONSTIPATION
     Dates: start: 20200422
  24. HEPARIN [Concomitant]
     Active Substance: HEPARIN SODIUM
     Dates: start: 20200528, end: 20200528
  25. VANCOMYCIN [Concomitant]
     Active Substance: VANCOMYCIN
     Indication: INFECTION
     Dates: start: 20200423, end: 20200505
  26. VANCOMYCIN [Concomitant]
     Active Substance: VANCOMYCIN
     Dates: start: 20200515, end: 20200515
  27. TAZOCIN [Concomitant]
     Active Substance: PIPERACILLIN SODIUM\TAZOBACTAM SODIUM
     Dates: start: 20200517, end: 20200521
  28. ROCURONIUM [Concomitant]
     Active Substance: ROCURONIUM BROMIDE
     Indication: MECHANICAL VENTILATION
     Dates: start: 20200507, end: 20200507
  29. AMLODIPINE [Concomitant]
     Active Substance: AMLODIPINE BESYLATE
     Indication: HYPERTENSION
     Dates: start: 20200424, end: 20200501
  30. LANSOPRAZOLE. [Concomitant]
     Active Substance: LANSOPRAZOLE
     Dates: start: 20200420
  31. VASOPRESSIN. [Concomitant]
     Active Substance: VASOPRESSIN
     Indication: HYPOTENSION
     Dates: start: 20200517, end: 20200519
  32. HEPARIN [Concomitant]
     Active Substance: HEPARIN SODIUM
     Dosage: 1300 IU
     Dates: start: 20200428
  33. POLYETHYLENE GLYCOL [Concomitant]
     Active Substance: POLYETHYLENE GLYCOLS
     Indication: CONSTIPATION
     Dates: start: 20200428, end: 20200522

REACTIONS (5)
  - Pyrexia [Not Recovered/Not Resolved]
  - Pneumonia [Unknown]
  - Deep vein thrombosis [Unknown]
  - Septic shock [Not Recovered/Not Resolved]
  - Sepsis [Unknown]

NARRATIVE: CASE EVENT DATE: 20200428
